FAERS Safety Report 25249860 (Version 1)
Quarter: 2025Q2

REPORT INFORMATION
  Report Type: Other
  Country: BG (occurrence: BG)
  Receive Date: 20250429
  Receipt Date: 20250429
  Transmission Date: 20250717
  Serious: Yes (Other)
  Sender: ANI
  Company Number: BG-ANIPHARMA-022592

PATIENT
  Age: 91 Year
  Sex: Male

DRUGS (6)
  1. PROPAFENONE [Suspect]
     Active Substance: PROPAFENONE
     Indication: Atrial fibrillation
  2. BISOPROLOL [Concomitant]
     Active Substance: BISOPROLOL
     Indication: Hypertension
  3. APIXABAN [Concomitant]
     Active Substance: APIXABAN
     Indication: Product used for unknown indication
  4. SPIRONOLACTONE [Concomitant]
     Active Substance: SPIRONOLACTONE
     Indication: Product used for unknown indication
  5. MOXONIDINE [Concomitant]
     Active Substance: MOXONIDINE
     Indication: Hypertension
  6. PROPAFENONE [Suspect]
     Active Substance: PROPAFENONE
     Indication: Atrial flutter

REACTIONS (2)
  - Leukoplakia oral [Unknown]
  - Lichen planus [Unknown]
